FAERS Safety Report 24305617 (Version 2)
Quarter: 2024Q4

REPORT INFORMATION
  Report Type: Report from Study
  Country: IN (occurrence: IN)
  Receive Date: 20240911
  Receipt Date: 20241023
  Transmission Date: 20250115
  Serious: Yes (Hospitalization)
  Sender: ROCHE
  Company Number: IN-ROCHE-10000076003

PATIENT
  Age: 64 Year
  Sex: Female

DRUGS (1)
  1. PHESGO [Suspect]
     Active Substance: HYALURONIDASE-ZZXF\PERTUZUMAB\TRASTUZUMAB
     Indication: Breast cancer
     Route: 058
     Dates: start: 20240819

REACTIONS (6)
  - Vomiting [Unknown]
  - Nausea [Unknown]
  - Diarrhoea [Unknown]
  - Dysphagia [Unknown]
  - Dyspnoea [Unknown]
  - Asthma [Unknown]
